FAERS Safety Report 5814196-8 (Version None)
Quarter: 2008Q3

REPORT INFORMATION
  Report Type: 
  Country: None (occurrence: None)
  Receive Date: 20080715
  Receipt Date: 20080708
  Transmission Date: 20090109
  Serious: Yes (Death, Other)
  Sender: FDA-Public Use
  Company Number: CLOF-1000231

PATIENT

DRUGS (1)
  1. CLOLAR [Suspect]
     Indication: ACUTE LEUKAEMIA
     Dosage: 30 MG/M2, QDX5, INTRAVENOUS
     Route: 042

REACTIONS (5)
  - ATRIAL FIBRILLATION [None]
  - BLOOD ALKALINE PHOSPHATASE INCREASED [None]
  - EJECTION FRACTION DECREASED [None]
  - RASH [None]
  - RENAL FAILURE ACUTE [None]
